FAERS Safety Report 7843119-5 (Version None)
Quarter: 2011Q4

REPORT INFORMATION
  Report Type: 
  Country: None (occurrence: None)
  Receive Date: 20111025
  Receipt Date: 20111021
  Transmission Date: 20120403
  Serious: Yes (Other)
  Sender: FDA-Public Use
  Company Number: US-PFIZER INC-2011255477

PATIENT

DRUGS (1)
  1. CHANTIX [Suspect]
     Dosage: UNK

REACTIONS (6)
  - INSOMNIA [None]
  - TREMOR [None]
  - ANXIETY [None]
  - NIGHTMARE [None]
  - CRYING [None]
  - DEPRESSION [None]
